FAERS Safety Report 15096556 (Version 2)
Quarter: 2018Q3

REPORT INFORMATION
  Report Type: Spontaneous
  Country: DE (occurrence: DE)
  Receive Date: 20180702
  Receipt Date: 20180703
  Transmission Date: 20181010
  Serious: Yes (Other)
  Sender: FDA-Public Use
  Company Number: PHHY2018DE031950

PATIENT
  Age: 63 Year
  Sex: Male

DRUGS (7)
  1. SYMPAL [Suspect]
     Active Substance: DEXKETOPROFEN
     Dosage: UNK (THE INJECTIONS TOOK PLACE EVERY 48 HOURS)
     Route: 030
     Dates: start: 20161010
  2. DEXAMETHASONE. [Suspect]
     Active Substance: DEXAMETHASONE
     Indication: BACK PAIN
     Dosage: UNK (THE INJECTIONS TOOK PLACE EVERY 48 HOURS)
     Route: 030
     Dates: start: 20120123
  3. DEXAMETHASONE. [Suspect]
     Active Substance: DEXAMETHASONE
     Dosage: UNK (FOUR INJECTIONS; THE INJECTIONS TOOK PLACE EVERY 48 HOURS)
     Route: 030
     Dates: start: 20120125
  4. SYMPAL [Suspect]
     Active Substance: DEXKETOPROFEN
     Dosage: UNK (THE INJECTIONS TOOK PLACE EVERY 48 HOURS)
     Route: 030
     Dates: start: 20161012
  5. SYMPAL [Suspect]
     Active Substance: DEXKETOPROFEN
     Indication: BACK PAIN
     Dosage: UNK (THE INJECTIONS TOOK PLACE EVERY 48 HOURS)
     Route: 030
     Dates: start: 20161007
  6. DEXAMETHASONE. [Suspect]
     Active Substance: DEXAMETHASONE
     Dosage: UNK (FOUR INJECTIONS; THE INJECTIONS TOOK PLACE EVERY 48 HOURS)
     Route: 030
     Dates: start: 20120127
  7. SYMPAL [Suspect]
     Active Substance: DEXKETOPROFEN
     Dosage: UNK (THE INJECTIONS TOOK PLACE EVERY 48 HOURS)
     Route: 030
     Dates: start: 20161014

REACTIONS (6)
  - Type 2 diabetes mellitus [Not Recovered/Not Resolved]
  - Peripheral coldness [Unknown]
  - Paraesthesia [Unknown]
  - Glucose urine present [Unknown]
  - Blood glucose increased [Unknown]
  - Paraesthesia [None]

NARRATIVE: CASE EVENT DATE: 2015
